FAERS Safety Report 20763777 (Version 3)
Quarter: 2022Q2

REPORT INFORMATION
  Report Type: Report from Study
  Country: GB (occurrence: GB)
  Receive Date: 20220428
  Receipt Date: 20220627
  Transmission Date: 20220721
  Serious: Yes (Other)
  Sender: FDA-Public Use
  Company Number: GB-GILEAD-2022-0579194

PATIENT
  Sex: Female

DRUGS (5)
  1. EMTRICITABINE\TENOFOVIR [Suspect]
     Active Substance: EMTRICITABINE\TENOFOVIR
     Indication: Product used for unknown indication
     Dosage: 1 DOSAGE FORM , 200 MG/10 MG (LOW DOSE)
     Route: 065
  2. NORVIR [Suspect]
     Active Substance: RITONAVIR
     Indication: Product used for unknown indication
     Route: 065
  3. PREZISTA [Suspect]
     Active Substance: DARUNAVIR ETHANOLATE
     Indication: Product used for unknown indication
     Route: 048
  4. RITONAVIR [Concomitant]
     Active Substance: RITONAVIR
  5. DARUNAVIR [Concomitant]
     Active Substance: DARUNAVIR

REACTIONS (25)
  - Blood cholesterol increased [Unknown]
  - Blood glucose fluctuation [Unknown]
  - Malnutrition [Unknown]
  - Malabsorption [Unknown]
  - Weight decreased [Unknown]
  - Pain [Unknown]
  - Decubitus ulcer [Unknown]
  - Musculoskeletal pain [Unknown]
  - Night sweats [Unknown]
  - Nightmare [Unknown]
  - Headache [Unknown]
  - Pain [Unknown]
  - Protein urine present [Unknown]
  - Weight decreased [Unknown]
  - Malnutrition [Unknown]
  - Malabsorption [Unknown]
  - Protein urine present [Unknown]
  - Blood cholesterol increased [Unknown]
  - Blood glucose increased [Unknown]
  - Arthralgia [Unknown]
  - Back pain [Unknown]
  - Pain in extremity [Unknown]
  - Night sweats [Unknown]
  - Headache [Unknown]
  - Nightmare [Unknown]
